FAERS Safety Report 13337446 (Version 12)
Quarter: 2019Q1

REPORT INFORMATION
  Report Type: Report from Study
  Country: CA (occurrence: CA)
  Receive Date: 20170315
  Receipt Date: 20190110
  Transmission Date: 20190417
  Serious: Yes (Other)
  Sender: FDA-Public Use
  Company Number: PHHY2014CA147820

PATIENT
  Age: 49 Year
  Sex: Female

DRUGS (1)
  1. SANDOSTATIN LAR DEPOT [Suspect]
     Active Substance: OCTREOTIDE ACETATE
     Indication: ACROMEGALY
     Dosage: 30 MG, QMO (ONCE A MONTH)
     Route: 030
     Dates: start: 20140103

REACTIONS (31)
  - Muscle spasms [Unknown]
  - Limb discomfort [Recovering/Resolving]
  - Vomiting [Unknown]
  - Abdominal discomfort [Not Recovered/Not Resolved]
  - Blood pressure fluctuation [Unknown]
  - Cough [Unknown]
  - Rash generalised [Recovering/Resolving]
  - Injection site pain [Recovered/Resolved]
  - Abdominal distension [Not Recovered/Not Resolved]
  - Diarrhoea [Recovered/Resolved]
  - Rash [Unknown]
  - Muscle spasms [Recovered/Resolved]
  - Throat irritation [Unknown]
  - Abdominal pain [Not Recovered/Not Resolved]
  - Diarrhoea [Recovered/Resolved]
  - Alopecia [Unknown]
  - Flatulence [Unknown]
  - Abdominal pain upper [Unknown]
  - Blood pressure systolic increased [Unknown]
  - Body temperature decreased [Unknown]
  - Diarrhoea [Not Recovered/Not Resolved]
  - Headache [Unknown]
  - Menopausal symptoms [Unknown]
  - Dizziness [Unknown]
  - Injection site mass [Unknown]
  - Muscle spasms [Recovered/Resolved]
  - Gait inability [Unknown]
  - Skin discolouration [Unknown]
  - Blood pressure increased [Unknown]
  - Nausea [Not Recovered/Not Resolved]
  - Frequent bowel movements [Recovering/Resolving]

NARRATIVE: CASE EVENT DATE: 201401
